FAERS Safety Report 5091461-6 (Version None)
Quarter: 2006Q3

REPORT INFORMATION
  Report Type: 
  Country: None (occurrence: None)
  Receive Date: 20060829
  Receipt Date: 20060720
  Transmission Date: 20061208
  Serious: Yes (Other)
  Sender: FDA-Public Use
  Company Number: CA-GLAXOSMITHKLINE-A0613354A

PATIENT
  Age: 87 Year
  Sex: Male

DRUGS (5)
  1. AVODART [Suspect]
     Indication: DRUG USE FOR UNKNOWN INDICATION
     Route: 048
     Dates: start: 20060714, end: 20060714
  2. UNSPECIFIED MEDICATION [Concomitant]
  3. NORVASC [Concomitant]
     Indication: CARDIOVASCULAR DISORDER
     Dosage: 5MG PER DAY
     Route: 048
     Dates: start: 20060127, end: 20060727
  4. ASPIRIN [Concomitant]
     Indication: CARDIOVASCULAR DISORDER
     Dosage: 51MG PER DAY
     Route: 048
  5. LIPITOR [Concomitant]
     Indication: BLOOD CHOLESTEROL INCREASED
     Route: 048
     Dates: start: 20060626, end: 20060626

REACTIONS (3)
  - COUGH [None]
  - DYSGEUSIA [None]
  - DYSPNOEA [None]
